FAERS Safety Report 5624470-6 (Version None)
Quarter: 2008Q1

REPORT INFORMATION
  Report Type: 
  Country: None (occurrence: None)
  Receive Date: 20080213
  Receipt Date: 20080129
  Transmission Date: 20080703
  Serious: Yes (Other)
  Sender: FDA-Public Use
  Company Number: DE-AMGEN-UK263202

PATIENT

DRUGS (2)
  1. KEPIVANCE [Suspect]
     Indication: MUCOSAL INFLAMMATION
     Route: 065
  2. METHOTREXATE [Concomitant]

REACTIONS (2)
  - ERYTHEMA [None]
  - SKIN EXFOLIATION [None]
